FAERS Safety Report 25776429 (Version 1)
Quarter: 2025Q3

REPORT INFORMATION
  Report Type: Spontaneous
  Country: US (occurrence: US)
  Receive Date: 20250909
  Receipt Date: 20250909
  Transmission Date: 20251020
  Serious: No
  Sender: DOMPE FARMACEUTICI
  Company Number: US-FARMAPROD-202502-0666

PATIENT
  Age: 67 Year
  Sex: Male

DRUGS (5)
  1. OXERVATE [Suspect]
     Active Substance: CENEGERMIN-BKBJ
     Indication: Keratitis
     Route: 047
     Dates: start: 20250226
  2. MOXIFLOXACIN [Concomitant]
     Active Substance: MOXIFLOXACIN
  3. EYE DROPS [TETRYZOLINE HYDROCHLORIDE] [Concomitant]
  4. PREDNISOLONE [Concomitant]
     Active Substance: PREDNISOLONE
  5. NATACYN [Concomitant]
     Active Substance: NATAMYCIN

REACTIONS (3)
  - Eye pain [Unknown]
  - Off label use [Unknown]
  - Off label use [Unknown]

NARRATIVE: CASE EVENT DATE: 20250226
